FAERS Safety Report 7783073-8 (Version None)
Quarter: 2011Q3

REPORT INFORMATION
  Report Type: 
  Country: None (occurrence: None)
  Receive Date: 20110928
  Receipt Date: 20110923
  Transmission Date: 20111222
  Serious: Yes (Other)
  Sender: FDA-Public Use
  Company Number: GB-SANOFI-AVENTIS-2011SA060370

PATIENT
  Sex: Female

DRUGS (1)
  1. ARAVA [Suspect]
     Dosage: START DATE: 2-3 YEARS AGO
     Route: 065
     Dates: start: 20080101

REACTIONS (1)
  - TUBULOINTERSTITIAL NEPHRITIS [None]
